FAERS Safety Report 7534615-9 (Version None)
Quarter: 2011Q2

REPORT INFORMATION
  Report Type: 
  Country: None (occurrence: None)
  Receive Date: 20110609
  Receipt Date: 20110128
  Transmission Date: 20111010
  Serious: Yes (Hospitalization, Other)
  Sender: FDA-Public Use
  Company Number: PHHY2010NL87294

PATIENT
  Age: 53 Year
  Sex: Male

DRUGS (6)
  1. VALPROIC ACID [Concomitant]
     Dosage: 2500 MG, UNK
  2. METOPROLOL [Concomitant]
     Dosage: 50 MG, UNK
  3. CLOZAPINE [Suspect]
     Dosage: 400 MG, QD
  4. CLOZAPINE [Suspect]
     Indication: SCHIZOAFFECTIVE DISORDER
     Dosage: 350 MG, QD
  5. CLOZAPINE [Suspect]
     Indication: HALLUCINATION, AUDITORY
     Dosage: 600 MG, QD
  6. LORAZEPAM [Concomitant]
     Dosage: 3 MG, UNK

REACTIONS (14)
  - ABDOMINAL DISCOMFORT [None]
  - DELIRIUM [None]
  - CHOLECYSTITIS [None]
  - CHOLELITHIASIS [None]
  - TACHYCARDIA [None]
  - C-REACTIVE PROTEIN INCREASED [None]
  - HEART RATE INCREASED [None]
  - LEUKOCYTOSIS [None]
  - CONSTIPATION [None]
  - INTESTINAL FISTULA [None]
  - WHITE BLOOD CELL COUNT INCREASED [None]
  - ANTIPSYCHOTIC DRUG LEVEL INCREASED [None]
  - GALLSTONE ILEUS [None]
  - ANTIPSYCHOTIC DRUG LEVEL BELOW THERAPEUTIC [None]
